FAERS Safety Report 5148275-8 (Version None)
Quarter: 2006Q4

REPORT INFORMATION
  Report Type: 
  Country: None (occurrence: None)
  Receive Date: 20061106
  Receipt Date: 20061023
  Transmission Date: 20070319
  Serious: Yes (Death)
  Sender: FDA-Public Use
  Company Number: 231671

PATIENT

DRUGS (1)
  1. RITUXIMAB (RITUXIMAB)CONC FOR SOLUTION FOR INFUSION [Suspect]
     Indication: NON-HODGKIN'S LYMPHOMA
     Dosage: 375 MG/M2,
     Dates: start: 20020101, end: 20030501

REACTIONS (2)
  - CYTOMEGALOVIRUS INFECTION [None]
  - PNEUMOCYSTIS JIROVECI PNEUMONIA [None]
